FAERS Safety Report 21371471 (Version 1)
Quarter: 2022Q3

REPORT INFORMATION
  Report Type: Spontaneous
  Country: RU (occurrence: RU)
  Receive Date: 20220923
  Receipt Date: 20220923
  Transmission Date: 20221026
  Serious: Yes (Death, Life-Threatening, Other)
  Sender: FDA-Public Use
  Company Number: RU-AMGEN-RUSSP2022159917

PATIENT

DRUGS (5)
  1. CARFILZOMIB [Suspect]
     Active Substance: CARFILZOMIB
     Indication: Plasma cell myeloma
     Dosage: UNK
     Route: 065
  2. BORTEZOMIB [Concomitant]
     Active Substance: BORTEZOMIB
     Indication: Plasma cell myeloma
     Dosage: 1.3 MILLIGRAM/SQ. METER (ON CYCLE DAYS 1, 4, 8, AND 11)
     Route: 065
  3. IXAZOMIB [Concomitant]
     Active Substance: IXAZOMIB
     Indication: Plasma cell myeloma
     Dosage: 4 MILLIGRAM (CYCLE DAYS 1, 8, AND 15)
     Route: 065
  4. POMALIDOMIDE [Concomitant]
     Active Substance: POMALIDOMIDE
     Indication: Plasma cell myeloma
     Dosage: 4 MILLIGRAM, QD (FOR 21 DAYS OF A 28-DAY CYCLE)
     Route: 065
  5. DEXAMETHASONE [Concomitant]
     Active Substance: DEXAMETHASONE
     Indication: Plasma cell myeloma
     Route: 065

REACTIONS (20)
  - Death [Fatal]
  - Bacterial sepsis [Fatal]
  - Chronic obstructive pulmonary disease [Fatal]
  - Severe acute respiratory syndrome [Fatal]
  - Polyneuropathy [Unknown]
  - Pancytopenia [Unknown]
  - Plasma cell myeloma [Fatal]
  - Neutropenia [Unknown]
  - Thrombocytopenia [Unknown]
  - Delirium [Unknown]
  - Therapy non-responder [Unknown]
  - Oedema [Unknown]
  - Urticaria [Unknown]
  - Vasculitic rash [Unknown]
  - Infection [Unknown]
  - Off label use [Unknown]
  - Generalised oedema [Unknown]
  - Fatigue [Unknown]
  - Pyrexia [Unknown]
  - Asthenia [Unknown]
